FAERS Safety Report 6160090-5 (Version None)
Quarter: 2009Q2

REPORT INFORMATION
  Report Type: 
  Country: None (occurrence: None)
  Receive Date: 20090416
  Receipt Date: 20090331
  Transmission Date: 20091009
  Serious: Yes (Life-Threatening, Hospitalization)
  Sender: FDA-Public Use
  Company Number: 1000000595

PATIENT
  Age: 64 Year
  Sex: Female

DRUGS (10)
  1. MILNACIPRAN (MILNACIPRAN HYDROCHLORIDE) (50 MILLIGRAM, TABLETS) [Suspect]
     Indication: DEPRESSION
     Dosage: 100 MG (50 MG, 2 IN 1 D), ORAL
     Route: 048
     Dates: start: 20080410, end: 20080723
  2. AMITRIPTYLINE HYDROCHLORIDE [Concomitant]
  3. NITRAZEPAM [Concomitant]
  4. OMEPRAZOLE [Concomitant]
  5. DIMETICONE [Concomitant]
  6. MITIGLINIDE [Concomitant]
  7. MAGNESIUM OXIDE [Concomitant]
  8. SENNOSIDE A+B CALCIUM [Concomitant]
  9. GLYCYRRHIZIC ACID [Concomitant]
  10. METHIONINE, ACTIVE [Concomitant]

REACTIONS (6)
  - ALTERED STATE OF CONSCIOUSNESS [None]
  - DEHYDRATION [None]
  - PHAEOCHROMOCYTOMA [None]
  - PYREXIA [None]
  - SINUS TACHYCARDIA [None]
  - SOMNOLENCE [None]
